FAERS Safety Report 24705541 (Version 1)
Quarter: 2024Q4

REPORT INFORMATION
  Report Type: Spontaneous
  Country: US (occurrence: US)
  Receive Date: 20241206
  Receipt Date: 20241206
  Transmission Date: 20250114
  Serious: No
  Sender: ALVOGEN
  Company Number: US-ALVOGEN-2024092959

PATIENT
  Sex: Female

DRUGS (2)
  1. LEVOTHYROXINE [Suspect]
     Active Substance: LEVOTHYROXINE
     Indication: Hypothyroidism
     Dosage: START DATE: 180 DAYS?50 MCG, ONCE DAILY IN THE MORNING
  2. LEVOTHYROXINE [Suspect]
     Active Substance: LEVOTHYROXINE
     Indication: Hypothyroidism
     Dosage: LATER INCREASED DOSE TO 75 MCG, ONCE DAILY IN THE MORNING

REACTIONS (9)
  - Constipation [Unknown]
  - Breast mass [Unknown]
  - Renal disorder [Unknown]
  - Osteoporosis [Unknown]
  - Illness [Unknown]
  - Palpitations [Unknown]
  - Hypertension [Unknown]
  - Cold sweat [Unknown]
  - Drug ineffective [Unknown]
